FAERS Safety Report 5940366-4 (Version None)
Quarter: 2008Q4

REPORT INFORMATION
  Report Type: 
  Country: None (occurrence: None)
  Receive Date: 20081021
  Receipt Date: 20071109
  Transmission Date: 20090506
  Serious: Yes (Other)
  Sender: FDA-Public Use
  Company Number: HQWYE658830JUL04

PATIENT
  Age: 58 Year
  Sex: Female

DRUGS (3)
  1. PREMARIN [Suspect]
  2. AMEN [Suspect]
  3. ESTRADERM [Suspect]

REACTIONS (1)
  - OVARIAN CANCER METASTATIC [None]
